FAERS Safety Report 9883765 (Version 1)
Quarter: 2014Q1

REPORT INFORMATION
  Report Type: Spontaneous
  Country: KR (occurrence: KR)
  Receive Date: 20140210
  Receipt Date: 20140210
  Transmission Date: 20141002
  Serious: Yes (Hospitalization, Other)
  Sender: FDA-Public Use
  Company Number: KR-ELI_LILLY_AND_COMPANY-KR201401011158

PATIENT
  Age: 21 Year
  Sex: Male

DRUGS (5)
  1. OLANZAPINE [Suspect]
     Indication: CONDUCT DISORDER
     Dosage: 10 MG, OTHER
     Route: 065
     Dates: start: 2009, end: 201003
  2. OLANZAPINE [Suspect]
     Dosage: 5 MG, OTHER
     Route: 065
     Dates: start: 2011, end: 2011
  3. VALPROATE [Concomitant]
     Dosage: 1000 MG, OTHER
     Route: 065
     Dates: start: 2009
  4. LITHIUM [Concomitant]
     Indication: CONDUCT DISORDER
     Dosage: 600 MG, OTHER
     Route: 065
     Dates: start: 201109, end: 201202
  5. VALPROIC ACID [Concomitant]
     Indication: CONDUCT DISORDER
     Dosage: 750 MG, OTHER
     Route: 065

REACTIONS (8)
  - Dependence [Unknown]
  - Weight increased [Unknown]
  - Sleep disorder [Unknown]
  - Off label use [Recovered/Resolved]
  - Neutropenia [Recovered/Resolved]
  - School refusal [Unknown]
  - Mood altered [Unknown]
  - Aggression [Unknown]
